FAERS Safety Report 4469008-4 (Version None)
Quarter: 2004Q4

REPORT INFORMATION
  Report Type: 
  Country: None (occurrence: None)
  Receive Date: 20041005
  Receipt Date: 20041001
  Transmission Date: 20050328
  Serious: Yes (Other)
  Sender: FDA-Public Use
  Company Number: THQ2004A00858

PATIENT
  Age: 30 Year
  Sex: Female

DRUGS (2)
  1. LEUPROLIDE ACETATE [Suspect]
     Indication: ANAEMIA
     Dosage: 3.75 MG (3.75 MG, 1 IN 1 M)  INJECTION
     Dates: start: 20031120, end: 20040113
  2. LEUPROLIDE ACETATE [Suspect]
     Indication: UTERINE LEIOMYOMA
     Dosage: 3.75 MG (3.75 MG, 1 IN 1 M)  INJECTION
     Dates: start: 20031120, end: 20040113

REACTIONS (1)
  - UTERINE LEIOMYOSARCOMA [None]
